FAERS Safety Report 8790497 (Version 1)
Quarter: 2012Q4

REPORT INFORMATION
  Report Type: Spontaneous
  Country: US (occurrence: None)
  Receive Date: 20120912
  Receipt Date: 20120912
  Transmission Date: 20130627
  Serious: No
  Sender: FDA-Public Use
  Company Number: None

PATIENT
  Sex: Female
  Weight: 85.28 kg

DRUGS (4)
  1. VENLAFAXIN [Suspect]
     Indication: ANXIETY
     Dosage: 1 po daily
     Dates: start: 20100817, end: 20100920
  2. VENLAFAXIN [Suspect]
     Indication: DEPRESSION
     Dosage: 1 po daily
     Dates: start: 20100817, end: 20100920
  3. VENLAFAXIN [Suspect]
     Indication: ANXIETY
     Dosage: 1 po daily
     Dates: start: 20120808, end: 20120909
  4. VENLAFAXIN [Suspect]
     Indication: DEPRESSION
     Dosage: 1 po daily
     Dates: start: 20120808, end: 20120909

REACTIONS (4)
  - Depression [None]
  - Fatigue [None]
  - Hypersomnia [None]
  - Product substitution issue [None]
